FAERS Safety Report 13226978 (Version 2)
Quarter: 2017Q1

REPORT INFORMATION
  Report Type: Report from Study
  Country: CO (occurrence: CO)
  Receive Date: 20170213
  Receipt Date: 20170301
  Transmission Date: 20170428
  Serious: Yes (Other)
  Sender: FDA-Public Use
  Company Number: CO-INCYTE CORPORATION-2017IN000980

PATIENT
  Age: 63 Year
  Sex: Female
  Weight: 50 kg

DRUGS (4)
  1. JAKAVI [Suspect]
     Active Substance: RUXOLITINIB
     Indication: PRIMARY MYELOFIBROSIS
     Dosage: 10 MG, BID (5 MG, 2 TABLETS EVERY 12 HOURS)
     Route: 048
     Dates: start: 20170106, end: 20170204
  2. ACETAMINOFEN [Concomitant]
     Active Substance: ACETAMINOPHEN
     Indication: PAIN
     Dosage: 500 MG, QD
     Route: 048
  3. MORPHINE [Concomitant]
     Active Substance: MORPHINE
     Indication: PAIN
     Dosage: 6 DRP, Q4H
     Route: 048
  4. MORPHINE [Concomitant]
     Active Substance: MORPHINE
     Dosage: 6 DRP, Q4H
     Route: 048

REACTIONS (13)
  - Yellow skin [Unknown]
  - Psychiatric symptom [Unknown]
  - Dizziness [Unknown]
  - Nausea [Unknown]
  - Asphyxia [Unknown]
  - Respiration abnormal [Unknown]
  - Pain in extremity [Unknown]
  - Asthenia [Unknown]
  - Pain [Unknown]
  - Somnolence [Unknown]
  - Vomiting [Unknown]
  - Diarrhoea [Unknown]
  - Abdominal pain upper [Unknown]

NARRATIVE: CASE EVENT DATE: 20170106
